FAERS Safety Report 4330982-8 (Version None)
Quarter: 2004Q1

REPORT INFORMATION
  Report Type: 
  Country: None (occurrence: None)
  Receive Date: 20040329
  Receipt Date: 20040312
  Transmission Date: 20041129
  Serious: Yes (Hospitalization)
  Sender: FDA-Public Use
  Company Number: 2004-DE-01459UP

PATIENT
  Age: 75 Year
  Sex: Female

DRUGS (1)
  1. MIRAPEX [Suspect]
     Indication: PARKINSON'S DISEASE
     Dosage: 1.25 MG (0.25 MG, 5 IN 1 D); PO
     Route: 048

REACTIONS (2)
  - MUSCLE SPASMS [None]
  - PARKINSON'S DISEASE [None]
